FAERS Safety Report 8371521-4 (Version None)
Quarter: 2012Q2

REPORT INFORMATION
  Report Type: 
  Country: None (occurrence: None)
  Receive Date: 20120518
  Receipt Date: 20120508
  Transmission Date: 20120825
  Serious: No
  Sender: FDA-Public Use
  Company Number: US-ASTRAZENECA-2012SE29666

PATIENT
  Age: 32 Year
  Sex: Male
  Weight: 74.8 kg

DRUGS (3)
  1. SYMBICORT [Suspect]
     Indication: ASTHMA
     Dosage: 160/4.5 MCG, 2 PUFFS TWO TIMES A DAY
     Route: 055
     Dates: start: 20120207, end: 20120401
  2. XOPENEX [Concomitant]
     Indication: ASTHMA
     Dosage: 2 PUFFS AS NEEDED
  3. PREDNISONE [Concomitant]
     Indication: RESPIRATORY TRACT INFLAMMATION
     Dosage: EVERY 4 DAYS
     Route: 048

REACTIONS (2)
  - ASTHMA [None]
  - INTENTIONAL DRUG MISUSE [None]
